FAERS Safety Report 23996203 (Version 26)
Quarter: 2025Q3

REPORT INFORMATION
  Report Type: Spontaneous
  Country: AU (occurrence: AU)
  Receive Date: 20240620
  Receipt Date: 20250722
  Transmission Date: 20251020
  Serious: Yes (Hospitalization, Other)
  Sender: MYLAN
  Company Number: AU-MYLANLABS-2024M1047161

PATIENT
  Age: 58 Year
  Sex: Male

DRUGS (14)
  1. CLOZARIL [Suspect]
     Active Substance: CLOZAPINE
     Indication: Schizophrenia
  2. CLOZARIL [Suspect]
     Active Substance: CLOZAPINE
  3. CLOZARIL [Suspect]
     Active Substance: CLOZAPINE
  4. CLOZARIL [Suspect]
     Active Substance: CLOZAPINE
     Dosage: 350 MILLIGRAM, QD (NOCTE)
     Dates: start: 20160516, end: 20241209
  5. CLOZARIL [Suspect]
     Active Substance: CLOZAPINE
     Dates: start: 20250129, end: 20250227
  6. PALIPERIDONE [Concomitant]
     Active Substance: PALIPERIDONE
     Dosage: 525 MILLIGRAM, Q3MONTHS (PALIPERIDONE TRINA)
     Dates: end: 20241120
  7. PALIPERIDONE [Concomitant]
     Active Substance: PALIPERIDONE
     Dosage: 150 MILLIGRAM, 4XW (PALIPERIDONE SUSTENNA)
     Dates: start: 20250618
  8. DURVALUMAB [Concomitant]
     Active Substance: DURVALUMAB
     Dosage: 1500 MILLIGRAM, MONTHLY (EVERY 4 WEEKS)
     Dates: start: 20241025
  9. ATORVASTATIN [Concomitant]
     Active Substance: ATORVASTATIN
     Dosage: 20 MILLIGRAM, PM (AT NIGHT)
  10. PANTOPRAZOLE [Concomitant]
     Active Substance: PANTOPRAZOLE
     Dosage: 40 MILLIGRAM, PM (AT NIGHT)
  11. DOCUSATE SODIUM\SENNOSIDE B [Concomitant]
     Active Substance: DOCUSATE SODIUM\SENNOSIDE B
  12. PROMETHAZINE [Concomitant]
     Active Substance: PROMETHAZINE HYDROCHLORIDE
  13. VALPROATE SODIUM [Concomitant]
     Active Substance: VALPROATE SODIUM
     Dosage: 500 MILLIGRAM, BID (BD)
  14. OLANZAPINE [Concomitant]
     Active Substance: OLANZAPINE
     Dosage: UNK, BID (10MG IN MORNING AND 15 MG AT NIGHT)

REACTIONS (5)
  - Mental impairment [Unknown]
  - Pneumonia [Unknown]
  - Squamous cell carcinoma of lung [Unknown]
  - Leukopenia [Recovering/Resolving]
  - Neutropenia [Recovered/Resolved]

NARRATIVE: CASE EVENT DATE: 20240501
